FAERS Safety Report 4684964-7 (Version None)
Quarter: 2005Q2

REPORT INFORMATION
  Report Type: 
  Country: None (occurrence: None)
  Receive Date: 20050603
  Receipt Date: 20050525
  Transmission Date: 20051028
  Serious: Yes (Hospitalization, Other)
  Sender: FDA-Public Use
  Company Number: FRWYE693025MAY05

PATIENT
  Age: 26 Year
  Sex: Male

DRUGS (3)
  1. EFFEXOR [Suspect]
     Dosage: 1500 MG 1X PER 1 DAY ORAL
     Route: 048
     Dates: start: 20050322, end: 20050322
  2. NOCTAMID (LORMETAZEPAM) [Concomitant]
  3. XANAX [Concomitant]

REACTIONS (4)
  - HYPOTHERMIA [None]
  - INTENTIONAL MISUSE [None]
  - OVERDOSE [None]
  - SOMNOLENCE [None]
